FAERS Safety Report 8869745 (Version 1)
Quarter: 2012Q4

REPORT INFORMATION
  Report Type: 
  Country: US (occurrence: US)
  Receive Date: 20121026
  Receipt Date: 20121026
  Transmission Date: 20130627
  Serious: No
  Sender: FDA-Public Use
  Company Number: US-AMGEN-USASP2012044163

PATIENT
  Age: 44 Year
  Sex: Female
  Weight: 77.55 kg

DRUGS (11)
  1. ENBREL [Suspect]
     Indication: PRODUCT USED FOR UNKNOWN INDICATION
     Dosage: 50 mg, qwk
     Route: 058
  2. GEODON                             /01487002/ [Concomitant]
     Dosage: 20 mg, UNK
  3. NICOTINE [Concomitant]
     Dosage: 11 mg, qd
  4. LITHIUM [Concomitant]
     Dosage: 150 mg, UNK
  5. SEROQUEL [Concomitant]
     Dosage: 400 mg, UNK
  6. LEVOTHYROXIN [Concomitant]
     Dosage: 112 mug, UNK
  7. INDERAL [Concomitant]
     Dosage: 10 mg, UNK
  8. GUAIFENESIN W/HYDROCODONE [Concomitant]
     Dosage: 3.5-100
  9. KLONOPIN [Concomitant]
     Dosage: 1 mg, UNK
  10. COGENTIN [Concomitant]
     Dosage: 1mg/ml, UNK
  11. PLAQUENIL                          /00072602/ [Concomitant]
     Dosage: 200 mg, UNK

REACTIONS (1)
  - Injection site pain [Unknown]
